FAERS Safety Report 8190169-8 (Version None)
Quarter: 2012Q1

REPORT INFORMATION
  Report Type: 
  Country: None (occurrence: None)
  Receive Date: 20120307
  Receipt Date: 20120228
  Transmission Date: 20120608
  Serious: Yes (Other)
  Sender: FDA-Public Use
  Company Number: US-JNJFOC-20111110364

PATIENT
  Sex: Male

DRUGS (4)
  1. NUCYNTA ER [Suspect]
     Indication: PAIN
     Route: 048
  2. TRAMADOL HCL [Suspect]
     Indication: PRODUCT USED FOR UNKNOWN INDICATION
     Route: 048
  3. NUCYNTA ER [Suspect]
     Indication: PAIN
     Route: 048
  4. ALL OTHER THERAPEUTIC PRODUCTS [Concomitant]
     Route: 065

REACTIONS (1)
  - LOSS OF CONSCIOUSNESS [None]
